FAERS Safety Report 8378853-4 (Version None)
Quarter: 2012Q2

REPORT INFORMATION
  Report Type: 
  Country: None (occurrence: None)
  Receive Date: 20120523
  Receipt Date: 20120514
  Transmission Date: 20120825
  Serious: Yes (Hospitalization)
  Sender: FDA-Public Use
  Company Number: AT-BRISTOL-MYERS SQUIBB COMPANY-16589293

PATIENT
  Age: 46 Year
  Sex: Male

DRUGS (4)
  1. CLOZAPINE [Concomitant]
     Dates: start: 20120201
  2. FLUOXETINE [Interacting]
     Indication: SCHIZOPHRENIA, PARANOID TYPE
     Dates: start: 20110901, end: 20120404
  3. LORAZEPAM [Concomitant]
     Dates: start: 20120404, end: 20120405
  4. ABILIFY [Suspect]
     Indication: SCHIZOPHRENIA, PARANOID TYPE
     Dates: start: 20110901, end: 20120404

REACTIONS (4)
  - DRUG INTERACTION [None]
  - FALL [None]
  - EPILEPSY [None]
  - BLOOD CREATINE PHOSPHOKINASE INCREASED [None]
